FAERS Safety Report 8615425-8 (Version None)
Quarter: 2012Q3

REPORT INFORMATION
  Report Type: 
  Country: None (occurrence: None)
  Receive Date: 20120823
  Receipt Date: 20120817
  Transmission Date: 20120928
  Serious: Yes (Hospitalization)
  Sender: FDA-Public Use
  Company Number: IT-JNJFOC-20120810061

PATIENT
  Sex: Female
  Weight: 50 kg

DRUGS (3)
  1. MESALAMINE [Concomitant]
     Indication: COLITIS ULCERATIVE
     Route: 048
     Dates: start: 20110622, end: 20111001
  2. REMICADE [Suspect]
     Indication: COLITIS ULCERATIVE
     Route: 042
     Dates: start: 20100217, end: 20100526
  3. MESALAMINE [Concomitant]
     Route: 054
     Dates: start: 20110622, end: 20111017

REACTIONS (1)
  - PROCTOCOLECTOMY [None]
